FAERS Safety Report 5297110-6 (Version None)
Quarter: 2007Q1

REPORT INFORMATION
  Report Type: 
  Country: None (occurrence: None)
  Receive Date: 20070201
  Receipt Date: 20061002
  Transmission Date: 20070707
  Serious: No
  Sender: FDA-Public Use
  Company Number: 2006PV022306

PATIENT
  Age: 63 Year
  Sex: Male
  Weight: 99.7913 kg

DRUGS (5)
  1. BYETTA [Suspect]
     Indication: DIABETES MELLITUS NON-INSULIN-DEPENDENT
     Dosage: 5 MCG;BID;SC
     Route: 058
     Dates: start: 20060915
  2. GLUCOPHAGE [Concomitant]
  3. GLUCOTROL [Concomitant]
  4. AVANDIA [Concomitant]
  5. PREVACID [Concomitant]

REACTIONS (19)
  - ABDOMINAL PAIN UPPER [None]
  - ASTHENIA [None]
  - BRONCHITIS [None]
  - CEREBROVASCULAR ACCIDENT [None]
  - CHEST PAIN [None]
  - COUGH [None]
  - DYSGEUSIA [None]
  - DYSPHONIA [None]
  - DYSPNOEA [None]
  - FLANK PAIN [None]
  - HYPERHIDROSIS [None]
  - HYPOAESTHESIA [None]
  - NAUSEA [None]
  - PHARYNGOLARYNGEAL PAIN [None]
  - PNEUMONIA [None]
  - RHINITIS [None]
  - RHINORRHOEA [None]
  - VISUAL DISTURBANCE [None]
  - VOMITING [None]
